FAERS Safety Report 18279973 (Version 2)
Quarter: 2020Q3

REPORT INFORMATION
  Report Type: Report from Study
  Country: US (occurrence: US)
  Receive Date: 20200917
  Receipt Date: 20200928
  Transmission Date: 20201103
  Serious: Yes (Hospitalization)
  Sender: FDA-Public Use
  Company Number: US-JNJFOC-A-US2019-193764

PATIENT
  Age: 37 Year
  Sex: Female
  Weight: 49.94 kg

DRUGS (3)
  1. VELETRI [Suspect]
     Active Substance: EPOPROSTENOL
     Dosage: 8.5 NG/KG, PER MIN
     Route: 042
  2. VELETRI [Suspect]
     Active Substance: EPOPROSTENOL
     Indication: PULMONARY HYPERTENSION
     Dosage: 40 NG/KG, PER MIN
     Route: 042
  3. VELETRI [Suspect]
     Active Substance: EPOPROSTENOL
     Dosage: 44 NG/KG, PER MIN
     Route: 042

REACTIONS (14)
  - Pneumothorax [Unknown]
  - Rash [Unknown]
  - Hospice care [Unknown]
  - Pneumonia [Unknown]
  - Pericardial effusion [Unknown]
  - Dyspnoea exertional [Unknown]
  - Paracentesis [Unknown]
  - Ascites [Unknown]
  - Heart rate increased [Unknown]
  - Dyspnoea [Unknown]
  - Pleural effusion [Unknown]
  - Cellulitis [Unknown]
  - Drug intolerance [Unknown]
  - Catheter site infection [Unknown]

NARRATIVE: CASE EVENT DATE: 20200427
